FAERS Safety Report 9709477 (Version 1)
Quarter: 2013Q4

REPORT INFORMATION
  Report Type: Spontaneous
  Country: ES (occurrence: ES)
  Receive Date: 20131126
  Receipt Date: 20131126
  Transmission Date: 20140711
  Serious: Yes (Other)
  Sender: FDA-Public Use
  Company Number: ES-009507513-1311ESP009352

PATIENT
  Age: 67 Year
  Sex: Female

DRUGS (1)
  1. CELESTONE CRONODOSE [Suspect]
     Dosage: UNK
     Route: 030
     Dates: start: 20130430

REACTIONS (3)
  - Respiratory distress [Unknown]
  - Oedema mucosal [Unknown]
  - Erythema [Unknown]
